FAERS Safety Report 5363753-4 (Version None)
Quarter: 2007Q2

REPORT INFORMATION
  Report Type: 
  Country: None (occurrence: None)
  Receive Date: 20070618
  Receipt Date: 20070618
  Transmission Date: 20071010
  Serious: Yes (Life-Threatening, Hospitalization, Disabling, Other)
  Sender: FDA-Public Use
  Company Number: None

PATIENT
  Age: 29 Year
  Sex: Female
  Weight: 86.1834 kg

DRUGS (1)
  1. HYDROCODONE BITARTRATE [Suspect]
     Dates: start: 20070606, end: 20070609

REACTIONS (8)
  - AGITATION [None]
  - FEAR [None]
  - FEELING ABNORMAL [None]
  - FLIGHT OF IDEAS [None]
  - ILLOGICAL THINKING [None]
  - INSOMNIA [None]
  - PSYCHOTIC DISORDER [None]
  - SPEECH DISORDER [None]
